FAERS Safety Report 4286530-4 (Version None)
Quarter: 2004Q1

REPORT INFORMATION
  Report Type: 
  Country: None (occurrence: None)
  Receive Date: 20040205
  Receipt Date: 20040205
  Transmission Date: 20041129
  Serious: Yes (Other)
  Sender: FDA-Public Use
  Company Number: None

PATIENT
  Sex: Male

DRUGS (2)
  1. CORICIDIN [Suspect]
     Indication: DRUG ABUSER
     Dosage: 16 TABLETS ORAL 1 DOSE(S)
     Route: 048
  2. DELSYM [Concomitant]

REACTIONS (2)
  - DRUG ABUSER [None]
  - INTENTIONAL OVERDOSE [None]
